FAERS Safety Report 5458145-3 (Version None)
Quarter: 2007Q3

REPORT INFORMATION
  Report Type: 
  Country: None (occurrence: None)
  Receive Date: 20070917
  Receipt Date: 20070831
  Transmission Date: 20080115
  Serious: Yes (Hospitalization)
  Sender: FDA-Public Use
  Company Number: CIP07001283

PATIENT
  Age: 71 Year
  Sex: Female

DRUGS (5)
  1. RISEDRONATE SODIUM [Suspect]
     Indication: OSTEOPOROSIS
     Dosage: 2.5 MG DAILY, ORAL
     Route: 048
     Dates: start: 20061208, end: 20070330
  2. ASPARA-CA (ASPARTATE CALCIUM) [Concomitant]
  3. MOBIC [Concomitant]
  4. MUCOSTA (REBAMIPIDE) [Concomitant]
  5. ONEALFA (ALFACALCIDOL) [Concomitant]

REACTIONS (1)
  - BREAST CANCER FEMALE [None]
